FAERS Safety Report 9235531 (Version 1)
Quarter: 2013Q2

REPORT INFORMATION
  Report Type: Spontaneous
  Country: US (occurrence: None)
  Receive Date: 20130416
  Receipt Date: 20130416
  Transmission Date: 20140414
  Serious: No
  Sender: FDA-Public Use
  Company Number: None

PATIENT
  Age: 0 Day
  Sex: Male

DRUGS (1)
  1. ZELBORAF [Suspect]
     Dosage: 960MG  BID  PO
     Route: 048
     Dates: start: 20130320, end: 20130330

REACTIONS (2)
  - Furuncle [None]
  - Rash [None]
